FAERS Safety Report 4477596-7 (Version None)
Quarter: 2004Q4

REPORT INFORMATION
  Report Type: 
  Country: None (occurrence: None)
  Receive Date: 20041013
  Receipt Date: 20040929
  Transmission Date: 20050328
  Serious: Yes (Hospitalization, Disabling, Other)
  Sender: FDA-Public Use
  Company Number: CA_010403514

PATIENT
  Age: 45 Year
  Sex: Male

DRUGS (7)
  1. ZYPREXA [Suspect]
     Indication: BIPOLAR DISORDER
     Dosage: 7.5 MG AT BEDTIME
     Route: 048
     Dates: start: 20001109, end: 20010202
  2. ZYPREXA [Suspect]
     Indication: HYPOMANIA
     Dosage: 7.5 MG AT BEDTIME
     Route: 048
     Dates: start: 20001109, end: 20010202
  3. LITHIUM [Concomitant]
     Indication: BIPOLAR DISORDER
  4. VALPROATE SODIUM [Concomitant]
  5. ANTI-INFLAMMATORY [Concomitant]
  6. ALLOPURINOL [Concomitant]
  7. SYNTHROID [Concomitant]

REACTIONS (25)
  - ALANINE AMINOTRANSFERASE INCREASED [None]
  - BLOOD ALKALINE PHOSPHATASE INCREASED [None]
  - BLOOD BICARBONATE DECREASED [None]
  - BLOOD BILIRUBIN INCREASED [None]
  - BLOOD CALCIUM INCREASED [None]
  - BLOOD CHLORIDE DECREASED [None]
  - BLOOD CREATINE PHOSPHOKINASE INCREASED [None]
  - BLOOD CREATININE INCREASED [None]
  - BLOOD GLUCOSE DECREASED [None]
  - BLOOD MAGNESIUM INCREASED [None]
  - BLOOD PHOSPHORUS INCREASED [None]
  - BLOOD SODIUM INCREASED [None]
  - BLOOD UREA INCREASED [None]
  - COGNITIVE DISORDER [None]
  - DIABETIC COMA [None]
  - DIFFICULTY IN WALKING [None]
  - DRUG LEVEL BELOW THERAPEUTIC [None]
  - GAMMA-GLUTAMYLTRANSFERASE INCREASED [None]
  - HAEMATOCRIT DECREASED [None]
  - MEAN CELL HAEMOGLOBIN INCREASED [None]
  - PLATELET DISTRIBUTION WIDTH [None]
  - POLYNEUROPATHY [None]
  - PROTEIN TOTAL INCREASED [None]
  - RED BLOOD CELL COUNT DECREASED [None]
  - SCIATICA [None]
